FAERS Safety Report 13759343 (Version 1)
Quarter: 2017Q3

REPORT INFORMATION
  Report Type: Spontaneous
  Country: US (occurrence: US)
  Receive Date: 20170717
  Receipt Date: 20170717
  Transmission Date: 20171127
  Serious: No
  Sender: FDA-Public Use
  Company Number: US-PFIZER INC-2017305262

PATIENT
  Sex: Female
  Weight: 61.23 kg

DRUGS (5)
  1. SEROQUEL [Interacting]
     Active Substance: QUETIAPINE FUMARATE
     Indication: BIPOLAR DISORDER
     Dosage: 700MG AT NIGHT
  2. KLONOPIN [Concomitant]
     Active Substance: CLONAZEPAM
     Indication: ANXIETY
  3. KLONOPIN [Concomitant]
     Active Substance: CLONAZEPAM
     Indication: BIPOLAR DISORDER
     Dosage: 2MG A DAY
  4. LYRICA [Suspect]
     Active Substance: PREGABALIN
     Indication: BIPOLAR DISORDER
     Dosage: 200MG TWICE A DAY CAPSULES
  5. DEPAKOTE [Interacting]
     Active Substance: DIVALPROEX SODIUM
     Dosage: UNK

REACTIONS (9)
  - Myalgia [Recovering/Resolving]
  - Weight decreased [Unknown]
  - Pain [Unknown]
  - Drug interaction [Unknown]
  - Product use in unapproved indication [Unknown]
  - Insomnia [Unknown]
  - Depression [Unknown]
  - Anxiety [Unknown]
  - Condition aggravated [Unknown]
